FAERS Safety Report 6708865-5 (Version None)
Quarter: 2010Q2

REPORT INFORMATION
  Report Type: 
  Country: None (occurrence: None)
  Receive Date: 20100504
  Receipt Date: 20100421
  Transmission Date: 20101027
  Serious: No
  Sender: FDA-Public Use
  Company Number: AU-JNJFOC-20100403274

PATIENT
  Sex: Male

DRUGS (6)
  1. DURAGESIC-100 [Suspect]
     Indication: NECK PAIN
     Route: 062
  2. DURAGESIC-100 [Suspect]
     Route: 062
  3. DURAGESIC-100 [Suspect]
     Indication: INTERVERTEBRAL DISC PROTRUSION
     Route: 062
  4. DURAGESIC-100 [Suspect]
     Route: 062
  5. ENDONE [Concomitant]
     Indication: BREAKTHROUGH PAIN
  6. ACETAMINOPHEN W/ CODEINE [Concomitant]
     Indication: BREAKTHROUGH PAIN

REACTIONS (3)
  - BREAKTHROUGH PAIN [None]
  - MEDICATION ERROR [None]
  - PRODUCT QUALITY ISSUE [None]
